FAERS Safety Report 7655780-9 (Version None)
Quarter: 2011Q3

REPORT INFORMATION
  Report Type: 
  Country: None (occurrence: None)
  Receive Date: 20110804
  Receipt Date: 20110727
  Transmission Date: 20111222
  Serious: Yes (Death)
  Sender: FDA-Public Use
  Company Number: JP-B.I. PHARMACEUTICALS,INC./RIDGEFIELD-2011-DE-04326GD

PATIENT

DRUGS (1)
  1. TIOTROPIUM [Suspect]

REACTIONS (1)
  - DEATH [None]
